FAERS Safety Report 4262384-7 (Version None)
Quarter: 2004Q1

REPORT INFORMATION
  Report Type: 
  Country: None (occurrence: None)
  Receive Date: 20040102
  Receipt Date: 20031222
  Transmission Date: 20041129
  Serious: Yes (Other)
  Sender: FDA-Public Use
  Company Number: PHBS2003JP14477

PATIENT
  Age: 34 Year
  Sex: Female

DRUGS (4)
  1. LAMISIL [Suspect]
     Indication: NAIL TINEA
     Dosage: 125 MG/D
     Route: 048
     Dates: start: 19980916, end: 19981007
  2. KAMI-SHOYO-SAN [Suspect]
     Indication: DERMATITIS ATOPIC
     Route: 048
     Dates: start: 19980922, end: 19981007
  3. PETROLATUM [Concomitant]
     Indication: DERMATITIS ATOPIC
     Route: 061
     Dates: start: 19960117
  4. VOALLA [Concomitant]
     Indication: DERMATITIS ATOPIC
     Dates: start: 19960117

REACTIONS (1)
  - PANCREATITIS [None]
